FAERS Safety Report 9844344 (Version 1)
Quarter: 2014Q1

REPORT INFORMATION
  Report Type: Spontaneous
  Country: GB (occurrence: None)
  Receive Date: 20140123
  Receipt Date: 20140123
  Transmission Date: 20141002
  Serious: Yes (Disabling)
  Sender: FDA-Public Use
  Company Number: 2014-000113

PATIENT
  Age: 65 Year
  Sex: Female
  Weight: 64 kg

DRUGS (1)
  1. DORYX [Suspect]
     Route: 048
     Dates: start: 20080805, end: 20080807

REACTIONS (3)
  - Lactose intolerance [None]
  - Abdominal pain upper [None]
  - Medical diet [None]
